FAERS Safety Report 9742603 (Version 1)
Quarter: 2013Q4

REPORT INFORMATION
  Report Type: Spontaneous
  Country: US (occurrence: US)
  Receive Date: 20131210
  Receipt Date: 20131210
  Transmission Date: 20140711
  Serious: No
  Sender: FDA-Public Use
  Company Number: US-GILEAD-2009-0024646

PATIENT
  Sex: Male
  Weight: 116.12 kg

DRUGS (16)
  1. LETAIRIS [Suspect]
     Indication: PULMONARY ARTERIAL HYPERTENSION
     Route: 048
     Dates: start: 20090921
  2. REVATIO [Concomitant]
  3. LASIX [Concomitant]
  4. VERAPAMIL [Concomitant]
  5. VASOTEC [Concomitant]
  6. ZOCOR [Concomitant]
  7. PROTONIX [Concomitant]
  8. GLYNASE [Concomitant]
  9. GLUCOPHAGE [Concomitant]
  10. HUMALOG [Concomitant]
  11. METANX [Concomitant]
  12. TENORMIN [Concomitant]
  13. HYDROCHLOROTHIAZIDE [Concomitant]
  14. ADVAIR [Concomitant]
  15. MULTIVITAMINS [Concomitant]
  16. ADULT ASPIRIN [Concomitant]

REACTIONS (5)
  - Increased appetite [Unknown]
  - Fluid retention [Unknown]
  - Flushing [Unknown]
  - Palpitations [Unknown]
  - Weight increased [Unknown]
